FAERS Safety Report 6914348-X (Version None)
Quarter: 2010Q3

REPORT INFORMATION
  Report Type: 
  Country: None (occurrence: None)
  Receive Date: 20100809
  Receipt Date: 20100806
  Transmission Date: 20110219
  Serious: Yes (Death)
  Sender: FDA-Public Use
  Company Number: SG-SANOFI-AVENTIS-2010SA046409

PATIENT
  Sex: Male

DRUGS (2)
  1. GLIBENCLAMIDE [Suspect]
  2. METAMFETAMINE [Concomitant]

REACTIONS (1)
  - NEUROGLYCOPENIA [None]
